FAERS Safety Report 23565055 (Version 1)
Quarter: 2024Q1

REPORT INFORMATION
  Report Type: Spontaneous
  Country: US (occurrence: None)
  Receive Date: 20240223
  Receipt Date: 20240223
  Transmission Date: 20240410
  Serious: Yes (Hospitalization)
  Sender: FDA-Public Use
  Company Number: None

PATIENT
  Age: 76 Year
  Sex: Male

DRUGS (11)
  1. TACROLIMUS [Suspect]
     Active Substance: TACROLIMUS
     Indication: Renal transplant
     Dosage: FREQUENCY : TWICE A DAY;?
     Route: 048
     Dates: start: 20230429
  2. lsosorbide dinitrate [Concomitant]
  3. MYCOPHENOLATE [Concomitant]
  4. PREDNISONE [Concomitant]
     Active Substance: PREDNISONE
  5. sodium bicarb [Concomitant]
  6. TACROLIMUS [Concomitant]
  7. VALGANCICLOVIR [Concomitant]
     Active Substance: VALGANCICLOVIR
  8. ELIQUIS [Concomitant]
     Active Substance: APIXABAN
  9. GUANFACINE [Concomitant]
     Active Substance: GUANFACINE
  10. MAGNESIUM OXIDE [Concomitant]
     Active Substance: MAGNESIUM OXIDE
  11. metoprolol er [Concomitant]

REACTIONS (3)
  - Hydronephrosis [None]
  - Small intestinal obstruction [None]
  - Ill-defined disorder [None]

NARRATIVE: CASE EVENT DATE: 20240213
